FAERS Safety Report 7088978-1 (Version None)
Quarter: 2010Q4

REPORT INFORMATION
  Report Type: 
  Country: None (occurrence: None)
  Receive Date: 20101029
  Receipt Date: 20101022
  Transmission Date: 20110411
  Serious: Yes (Other)
  Sender: FDA-Public Use
  Company Number: 2010MA003872

PATIENT
  Age: 76 Year
  Sex: Male

DRUGS (8)
  1. GABAPENTIN [Suspect]
  2. METFORMIN HCL [Concomitant]
  3. ACETYLSALICYLIC ACID [Concomitant]
  4. GLUCOSAMINE [Concomitant]
  5. SIMVASTATIN [Concomitant]
  6. CANDESARRTAN [Concomitant]
  7. ATENOLOL [Concomitant]
  8. DIGOXIN [Concomitant]

REACTIONS (1)
  - WEIGHT INCREASED [None]
